FAERS Safety Report 8631712 (Version 2)
Quarter: 2014Q1

REPORT INFORMATION
  Report Type: Spontaneous
  Country: US (occurrence: US)
  Receive Date: 20120625
  Receipt Date: 20140106
  Transmission Date: 20141002
  Serious: No
  Sender: FDA-Public Use
  Company Number: US-BIOGENIDEC-2012BI021656

PATIENT
  Age: 20 Year
  Sex: Male

DRUGS (1)
  1. AVONEX [Suspect]
     Indication: MULTIPLE SCLEROSIS
     Route: 030
     Dates: start: 20021011

REACTIONS (3)
  - Drug administered at inappropriate site [Unknown]
  - Blindness [Not Recovered/Not Resolved]
  - Influenza like illness [Not Recovered/Not Resolved]
